FAERS Safety Report 6902477-6 (Version None)
Quarter: 2010Q3

REPORT INFORMATION
  Report Type: 
  Country: None (occurrence: None)
  Receive Date: 20100802
  Receipt Date: 20100802
  Transmission Date: 20110219
  Serious: No
  Sender: FDA-Public Use
  Company Number: None

PATIENT
  Sex: Female

DRUGS (1)
  1. GIANVI 3MG/0.2MG TEVA [Suspect]
     Dosage: 28 ONCE DAILY PO
     Route: 048
     Dates: start: 20100630, end: 20100723

REACTIONS (3)
  - HAEMORRHAGE [None]
  - METRORRHAGIA [None]
  - PRODUCT SUBSTITUTION ISSUE [None]
